FAERS Safety Report 13351766 (Version 9)
Quarter: 2018Q1

REPORT INFORMATION
  Report Type: Report from Study
  Country: CA (occurrence: CA)
  Receive Date: 20170320
  Receipt Date: 20180322
  Transmission Date: 20180508
  Serious: Yes (Hospitalization, Other)
  Sender: FDA-Public Use
  Company Number: CA-BRISTOL-MYERS SQUIBB COMPANY-BMS-2017-022535

PATIENT
  Age: 62 Year
  Sex: Female

DRUGS (1)
  1. ABATACEPT [Suspect]
     Active Substance: ABATACEPT
     Indication: RHEUMATOID ARTHRITIS
     Dosage: 750 MG, Q4WK
     Route: 042
     Dates: start: 20150709

REACTIONS (14)
  - Peripheral swelling [Unknown]
  - Knee operation [Unknown]
  - Pneumonia [Unknown]
  - Back pain [Unknown]
  - Infection [Unknown]
  - Intervertebral disc protrusion [Unknown]
  - Oropharyngeal pain [Unknown]
  - Pain [Unknown]
  - Cellulitis [Unknown]
  - Malaise [Unknown]
  - Wheezing [Unknown]
  - Joint swelling [Unknown]
  - Nasopharyngitis [Unknown]
  - Blister [Unknown]

NARRATIVE: CASE EVENT DATE: 20170310
